FAERS Safety Report 5836237-4 (Version None)
Quarter: 2008Q3

REPORT INFORMATION
  Report Type: 
  Country: None (occurrence: None)
  Receive Date: 20080806
  Receipt Date: 20080806
  Transmission Date: 20090109
  Serious: No
  Sender: FDA-Public Use
  Company Number: None

PATIENT

DRUGS (1)
  1. GABAPENTIN [Suspect]

REACTIONS (3)
  - GASTROENTERITIS [None]
  - RASH [None]
  - WEIGHT DECREASED [None]
